FAERS Safety Report 4528364-9 (Version None)
Quarter: 2004Q4

REPORT INFORMATION
  Report Type: 
  Country: None (occurrence: None)
  Receive Date: 20041126
  Receipt Date: 20040826
  Transmission Date: 20050328
  Serious: No
  Sender: FDA-Public Use
  Company Number: 2004US002228

PATIENT
  Age: 65 Year
  Sex: Female
  Weight: 73.9 kg

DRUGS (14)
  1. ALOXI [Suspect]
     Indication: PROPHYLAXIS OF NAUSEA AND VOMITING
     Dosage: SEE IMAGE
     Route: 040
     Dates: start: 20040623, end: 20040623
  2. ALOXI [Suspect]
     Indication: PROPHYLAXIS OF NAUSEA AND VOMITING
     Dosage: SEE IMAGE
     Route: 040
     Dates: start: 20040709, end: 20040709
  3. ALOXI [Suspect]
     Indication: PROPHYLAXIS OF NAUSEA AND VOMITING
     Dosage: SEE IMAGE
     Route: 040
     Dates: start: 20040805, end: 20040805
  4. ALOXI [Suspect]
     Indication: PROPHYLAXIS OF NAUSEA AND VOMITING
     Dosage: SEE IMAGE
     Route: 040
     Dates: start: 20040819, end: 20040819
  5. DECADRON [Concomitant]
  6. ADRIAMYCIN PFS [Concomitant]
  7. CYTOXAN [Concomitant]
  8. SODIUM CHLORIDE [Concomitant]
  9. CELEXA [Concomitant]
  10. LEVAQUIN [Concomitant]
  11. FAMVIR [Concomitant]
  12. COUMADIN [Concomitant]
  13. PRAVACHOL [Concomitant]
  14. LOVENOX [Concomitant]

REACTIONS (1)
  - INJECTION SITE VESICLES [None]
